FAERS Safety Report 10608175 (Version 1)
Quarter: 2014Q4

REPORT INFORMATION
  Report Type: Spontaneous
  Country: BR (occurrence: BR)
  Receive Date: 20141125
  Receipt Date: 20141125
  Transmission Date: 20150529
  Serious: Yes (Hospitalization)
  Sender: FDA-Public Use
  Company Number: BR-MYLANLABS-2014M1011837

PATIENT

DRUGS (10)
  1. METHOTREXATE [Interacting]
     Active Substance: METHOTREXATE
     Dosage: 10MG WEEKLY
     Route: 065
     Dates: start: 200801
  2. ASPIRIN                            /00002701/ [Interacting]
     Active Substance: ASPIRIN
     Indication: ACUTE MYOCARDIAL INFARCTION
     Route: 065
     Dates: start: 201012
  3. METHOTREXATE [Suspect]
     Active Substance: METHOTREXATE
     Indication: RHEUMATOID ARTHRITIS
     Dosage: 15MG WEEKLY
     Route: 065
     Dates: start: 200801
  4. PREDNISONE. [Concomitant]
     Active Substance: PREDNISONE
     Indication: RHEUMATOID ARTHRITIS
     Dosage: 10 MG/DAY
     Route: 065
     Dates: start: 201001
  5. SIMVASTATIN. [Concomitant]
     Active Substance: SIMVASTATIN
     Indication: ACUTE MYOCARDIAL INFARCTION
     Route: 065
     Dates: start: 201012
  6. CLOPIDOGREL [Concomitant]
     Active Substance: CLOPIDOGREL BISULFATE
     Indication: ACUTE MYOCARDIAL INFARCTION
     Route: 065
     Dates: start: 201012
  7. LEFLUNOMIDE. [Suspect]
     Active Substance: LEFLUNOMIDE
     Indication: RHEUMATOID ARTHRITIS
     Dosage: 20 MG/DAY
     Route: 065
     Dates: start: 201001
  8. FOLIC ACID. [Concomitant]
     Active Substance: FOLIC ACID
     Indication: RHEUMATOID ARTHRITIS
     Dosage: 5MG 2 DAYS AFTER TAKING METHOTREXATE
     Route: 065
     Dates: start: 200801
  9. ISOSORBIDE [Concomitant]
     Active Substance: ISOSORBIDE
     Indication: ACUTE MYOCARDIAL INFARCTION
     Route: 065
     Dates: start: 201012
  10. OMEPRAZOLE. [Interacting]
     Active Substance: OMEPRAZOLE
     Route: 065
     Dates: start: 201012

REACTIONS (2)
  - Leukopenia [Recovered/Resolved]
  - Drug interaction [Unknown]
